FAERS Safety Report 11281710 (Version 1)
Quarter: 2015Q3

REPORT INFORMATION
  Report Type: Spontaneous
  Country: US (occurrence: US)
  Receive Date: 20150717
  Receipt Date: 20150717
  Transmission Date: 20151125
  Serious: No
  Sender: FDA-Public Use
  Company Number: US-TAKEDA-2015TUS009003

PATIENT
  Sex: Female

DRUGS (5)
  1. CONTRAVE [Suspect]
     Active Substance: BUPROPION HYDROCHLORIDE\NALTREXONE HYDROCHLORIDE
     Dosage: 16MG/180MG
     Route: 048
     Dates: start: 20150514, end: 20150520
  2. CONTRAVE [Suspect]
     Active Substance: BUPROPION HYDROCHLORIDE\NALTREXONE HYDROCHLORIDE
     Dosage: 24MG/270MG
     Route: 048
     Dates: start: 20150521, end: 20150527
  3. CONTRAVE [Suspect]
     Active Substance: BUPROPION HYDROCHLORIDE\NALTREXONE HYDROCHLORIDE
     Indication: OVERWEIGHT
     Dosage: 8MG/90MG
     Route: 048
     Dates: start: 20150507, end: 20150513
  4. CONTRAVE [Suspect]
     Active Substance: BUPROPION HYDROCHLORIDE\NALTREXONE HYDROCHLORIDE
     Dosage: 32MG/360MG
     Route: 048
     Dates: start: 20150528, end: 20150611
  5. CONTRAVE [Suspect]
     Active Substance: BUPROPION HYDROCHLORIDE\NALTREXONE HYDROCHLORIDE
     Dosage: 24MG/270MG
     Route: 048
     Dates: start: 20150612

REACTIONS (3)
  - Nausea [Recovering/Resolving]
  - Drug ineffective [Not Recovered/Not Resolved]
  - Malaise [Recovering/Resolving]
